FAERS Safety Report 17608731 (Version 1)
Quarter: 2020Q2

REPORT INFORMATION
  Report Type: Report from Study
  Country: IT (occurrence: IT)
  Receive Date: 20200401
  Receipt Date: 20200401
  Transmission Date: 20200713
  Serious: Yes (Hospitalization)
  Sender: FDA-Public Use
  Company Number: IT-TEVA-2020-IT-1215292

PATIENT
  Age: 59 Year
  Sex: Female

DRUGS (8)
  1. BISOPROLOL FUMARATE. [Suspect]
     Active Substance: BISOPROLOL FUMARATE
     Indication: HYPERTENSION
     Route: 048
     Dates: start: 20200101, end: 20200205
  2. LYRICA [Concomitant]
     Active Substance: PREGABALIN
  3. CARDIOASPIRIN [Concomitant]
     Active Substance: ASPIRIN
  4. EUTIROX [Concomitant]
     Active Substance: LEVOTHYROXINE SODIUM
  5. MICARDIS [Concomitant]
     Active Substance: TELMISARTAN
  6. INSULIN [Concomitant]
     Active Substance: INSULIN NOS
  7. TORVAST [Concomitant]
     Active Substance: ATORVASTATIN
  8. ALLOPURINOLO [Concomitant]
     Active Substance: ALLOPURINOL

REACTIONS (2)
  - Presyncope [Recovering/Resolving]
  - Bradycardia [Recovering/Resolving]

NARRATIVE: CASE EVENT DATE: 20200205
